FAERS Safety Report 16724028 (Version 1)
Quarter: 2019Q4

REPORT INFORMATION
  Report Type: Spontaneous
  Country: US (occurrence: US)
  Receive Date: 20190820
  Receipt Date: 20190820
  Transmission Date: 20200122
  Serious: Yes (Hospitalization, Other)
  Sender: FDA-Public Use
  Company Number: None

PATIENT
  Age: 56 Year
  Sex: Female
  Weight: 88 kg

DRUGS (8)
  1. ONDANSETRON [Suspect]
     Active Substance: ONDANSETRON
  2. GABAPENTIN. [Suspect]
     Active Substance: GABAPENTIN
  3. PROVENTIL [Suspect]
     Active Substance: ALBUTEROL
  4. LASIX [Suspect]
     Active Substance: FUROSEMIDE
  5. BENADRYL [Suspect]
     Active Substance: DIPHENHYDRAMINE HYDROCHLORIDE
  6. MOBIC [Suspect]
     Active Substance: MELOXICAM
  7. POTASSIUM CHLORIDE. [Suspect]
     Active Substance: POTASSIUM CHLORIDE
  8. RUBRACA [Suspect]
     Active Substance: RUCAPARIB CAMSYLATE
     Indication: OVARIAN CANCER STAGE III
     Route: 048
     Dates: start: 20180601, end: 20190815

REACTIONS (2)
  - Pancytopenia [None]
  - Acute myeloid leukaemia [None]

NARRATIVE: CASE EVENT DATE: 20190815
